FAERS Safety Report 6985449-5 (Version None)
Quarter: 2010Q3

REPORT INFORMATION
  Report Type: 
  Country: None (occurrence: None)
  Receive Date: 20100915
  Receipt Date: 20100910
  Transmission Date: 20110219
  Serious: Yes (Hospitalization)
  Sender: FDA-Public Use
  Company Number: A0872128A

PATIENT
  Age: 25 Year
  Sex: Female

DRUGS (8)
  1. WELLBUTRIN SR [Suspect]
     Indication: DEPRESSION
     Dosage: 150MG TWICE PER DAY
     Route: 048
     Dates: start: 20090729, end: 20090824
  2. GLUTEN [Suspect]
     Indication: ILL-DEFINED DISORDER
     Route: 065
  3. LACTASE ENZYME [Concomitant]
  4. RANITIDINE [Concomitant]
  5. MELOXICAM [Concomitant]
  6. TEMAZEPAM [Concomitant]
  7. CYCLOBENZAPRINE HCL [Concomitant]
  8. ALBUTEROL [Concomitant]

REACTIONS (13)
  - ABSCESS [None]
  - ASTHENIA [None]
  - DECREASED APPETITE [None]
  - DEHYDRATION [None]
  - HALLUCINATION, AUDITORY [None]
  - HALLUCINATION, TACTILE [None]
  - HALLUCINATION, VISUAL [None]
  - HEARING IMPAIRED [None]
  - HYPERSENSITIVITY [None]
  - LOSS OF CONSCIOUSNESS [None]
  - PARANOIA [None]
  - THIRST DECREASED [None]
  - TINNITUS [None]
